FAERS Safety Report 6127887-9 (Version None)
Quarter: 2009Q1

REPORT INFORMATION
  Report Type: 
  Country: None (occurrence: None)
  Receive Date: 20090320
  Receipt Date: 20090320
  Transmission Date: 20090719
  Serious: No
  Sender: FDA-Public Use
  Company Number: None

PATIENT
  Sex: Male
  Weight: 81.6475 kg

DRUGS (1)
  1. EPOETIN ALFA [Suspect]
     Indication: BLOOD COUNT ABNORMAL
     Dosage: 4000 UNITS 2-A-WEEK 10-1-08 4001 UNITS 1-A-WEEK 2-1-09
     Dates: start: 20081001, end: 20090301

REACTIONS (1)
  - RASH MACULAR [None]
